FAERS Safety Report 6788843-0 (Version None)
Quarter: 2010Q2

REPORT INFORMATION
  Report Type: 
  Country: None (occurrence: None)
  Receive Date: 20100623
  Receipt Date: 20080703
  Transmission Date: 20101027
  Serious: No
  Sender: FDA-Public Use
  Company Number: US-PFIZER INC-2008041384

PATIENT
  Sex: Female

DRUGS (3)
  1. GENOTROPIN [Suspect]
     Indication: GROWTH HORMONE DEFICIENCY
     Dates: start: 20080507
  2. ACTIVELLA [Concomitant]
  3. LEVOXYL [Concomitant]

REACTIONS (1)
  - INJECTION SITE HAEMATOMA [None]
